FAERS Safety Report 13707659 (Version 2)
Quarter: 2017Q3

REPORT INFORMATION
  Report Type: Report from Study
  Country: JP (occurrence: JP)
  Receive Date: 20170630
  Receipt Date: 20170717
  Transmission Date: 20171127
  Serious: Yes (Other)
  Sender: FDA-Public Use
  Company Number: JP-PFIZER INC-2016290352

PATIENT
  Age: 79 Year
  Sex: Male
  Weight: 51.6 kg

DRUGS (8)
  1. SALAZOSULFAPYRIDINE [Concomitant]
     Active Substance: SULFASALAZINE
     Dosage: UNK
  2. LIDOCAINE. [Concomitant]
     Active Substance: LIDOCAINE
     Indication: CHONDROCALCINOSIS PYROPHOSPHATE
     Dosage: 1 % 1.5 ML
     Route: 042
     Dates: start: 20160329
  3. KOLBET [Concomitant]
     Active Substance: IGURATIMOD
     Dosage: UNK
  4. XELJANZ [Suspect]
     Active Substance: TOFACITINIB CITRATE
     Dosage: 5 MG, 2X/DAY
     Route: 048
     Dates: start: 20151107
  5. LINOLOSAL [Concomitant]
     Active Substance: BETAMETHASONE SODIUM PHOSPHATE
     Dosage: INJECTION SOLUTION 4 MG, 0.4 %
     Route: 042
     Dates: start: 20160329
  6. XELJANZ [Suspect]
     Active Substance: TOFACITINIB CITRATE
     Dosage: 5 MG, 1X/DAY
     Dates: start: 20151024, end: 20151106
  7. XELJANZ [Suspect]
     Active Substance: TOFACITINIB CITRATE
     Indication: RHEUMATOID ARTHRITIS
     Dosage: 5 MG, 2X/DAY
     Route: 048
     Dates: start: 20150604, end: 20151023
  8. LINOLOSAL [Concomitant]
     Active Substance: BETAMETHASONE SODIUM PHOSPHATE
     Indication: CHONDROCALCINOSIS PYROPHOSPHATE
     Dosage: INJECTION SOLUTION 4 MG, 0.4 %
     Route: 042
     Dates: start: 20160209

REACTIONS (3)
  - Spinal column stenosis [Not Recovered/Not Resolved]
  - Spinal cord compression [Not Recovered/Not Resolved]
  - Myelopathy [Not Recovered/Not Resolved]

NARRATIVE: CASE EVENT DATE: 20170414
